FAERS Safety Report 8567621-6 (Version None)
Quarter: 2012Q3

REPORT INFORMATION
  Report Type: 
  Country: None (occurrence: None)
  Receive Date: 20120803
  Receipt Date: 20120725
  Transmission Date: 20120928
  Serious: Yes (Hospitalization, Other)
  Sender: FDA-Public Use
  Company Number: US-ROCHE-1061260

PATIENT
  Sex: Male
  Weight: 106.69 kg

DRUGS (2)
  1. ACCUTANE [Suspect]
     Route: 048
     Dates: start: 19860915, end: 19861201
  2. ACCUTANE [Suspect]
     Indication: ACNE
     Route: 065
     Dates: start: 19820101

REACTIONS (7)
  - INTESTINAL HAEMORRHAGE [None]
  - DRY EYE [None]
  - INFLAMMATORY BOWEL DISEASE [None]
  - ANXIETY [None]
  - CROHN'S DISEASE [None]
  - LOWER GASTROINTESTINAL HAEMORRHAGE [None]
  - LIP DRY [None]
